FAERS Safety Report 7795483 (Version 2)
Quarter: 2013Q3

REPORT INFORMATION
  Report Type: Spontaneous
  Country: US (occurrence: US)
  Receive Date: 20110202
  Receipt Date: 20130930
  Transmission Date: 20140515
  Serious: Yes (Hospitalization)
  Sender: FDA-Public Use
  Company Number: US-RANBAXY-2011US-41379

PATIENT
  Age: 21 Year
  Sex: Male

DRUGS (3)
  1. RISPERIDONE [Suspect]
     Indication: PRODUCT USED FOR UNKNOWN INDICATION
     Dosage: UNK
     Route: 065
     Dates: start: 200704
  2. OLANZAPINE [Suspect]
     Indication: PRODUCT USED FOR UNKNOWN INDICATION
     Dosage: 15 MG EVERY NIGHT
     Route: 065
     Dates: start: 200902, end: 2009
  3. QUETIAPINE [Suspect]
     Indication: PSYCHOTIC DISORDER
     Dosage: 25 MG EVERY NIGHT
     Route: 065

REACTIONS (2)
  - Priapism [Recovered/Resolved]
  - Treatment noncompliance [Unknown]
